FAERS Safety Report 6922355-6 (Version None)
Quarter: 2010Q3

REPORT INFORMATION
  Report Type: 
  Country: None (occurrence: None)
  Receive Date: 20100813
  Receipt Date: 20100803
  Transmission Date: 20110219
  Serious: Yes (Disabling, Other)
  Sender: FDA-Public Use
  Company Number: US-BAYER-200912175NA

PATIENT
  Age: 21 Year
  Sex: Female
  Weight: 118 kg

DRUGS (1)
  1. MIRENA [Suspect]
     Indication: CONTRACEPTION
     Dosage: CONTINUOUS
     Route: 015
     Dates: start: 20080726

REACTIONS (14)
  - ABDOMINAL PAIN [None]
  - ANOSMIA [None]
  - ANXIETY [None]
  - BACK PAIN [None]
  - DEVICE EXPULSION [None]
  - FALLOPIAN TUBE DISORDER [None]
  - GALLBLADDER DISORDER [None]
  - MENSTRUATION DELAYED [None]
  - NAUSEA [None]
  - PELVIC PAIN [None]
  - UNEVALUABLE EVENT [None]
  - UTERINE PERFORATION [None]
  - VOMITING [None]
  - WEIGHT INCREASED [None]
